FAERS Safety Report 8131794-X (Version None)
Quarter: 2012Q1

REPORT INFORMATION
  Report Type: 
  Country: None (occurrence: None)
  Receive Date: 20120213
  Receipt Date: 20120207
  Transmission Date: 20120608
  Serious: Yes (Life-Threatening, Hospitalization)
  Sender: FDA-Public Use
  Company Number: US-US-EMD SERONO, INC.-7011465

PATIENT
  Sex: Female

DRUGS (9)
  1. ASPIRIN [Concomitant]
     Indication: CORONARY ARTERY DISEASE
  2. PREDNISONE [Concomitant]
     Dates: start: 20100512
  3. HEART PILLS [Concomitant]
  4. REBIF [Suspect]
     Route: 057
     Dates: end: 20100711
  5. RANEXA [Concomitant]
  6. VITAMIN D2 [Concomitant]
  7. REBIF [Suspect]
     Indication: MULTIPLE SCLEROSIS
     Route: 058
     Dates: start: 20100614
  8. AMANTADINE HCL [Concomitant]
     Dates: start: 20100511
  9. AMBIEN [Concomitant]
     Indication: INSOMNIA

REACTIONS (3)
  - DEPRESSION [None]
  - ANAEMIA [None]
  - COLITIS ISCHAEMIC [None]
